FAERS Safety Report 11430082 (Version 1)
Quarter: 2015Q3

REPORT INFORMATION
  Report Type: Report from Study
  Country: FR (occurrence: FR)
  Receive Date: 20150828
  Receipt Date: 20150828
  Transmission Date: 20151125
  Serious: Yes (Other)
  Sender: FDA-Public Use
  Company Number: FR-JNJFOC-20140314654

PATIENT

DRUGS (3)
  1. KIVEXA [Concomitant]
     Active Substance: ABACAVIR SULFATE\LAMIVUDINE
     Indication: PRODUCT USED FOR UNKNOWN INDICATION
     Route: 065
  2. PREZISTA [Suspect]
     Active Substance: DARUNAVIR ETHANOLATE
     Indication: PRODUCT USED FOR UNKNOWN INDICATION
     Route: 065
     Dates: start: 2013
  3. NORVIR [Concomitant]
     Active Substance: RITONAVIR
     Indication: PRODUCT USED FOR UNKNOWN INDICATION
     Route: 065

REACTIONS (11)
  - Fatigue [Unknown]
  - Stress [Unknown]
  - Headache [Not Recovered/Not Resolved]
  - Adverse event [Unknown]
  - Anxiety [Not Recovered/Not Resolved]
  - Drug intolerance [Unknown]
  - Depression [Not Recovered/Not Resolved]
  - Nausea [Unknown]
  - Fear [Unknown]
  - Panic attack [Unknown]
  - Therapy cessation [Unknown]
